FAERS Safety Report 8587561-6 (Version None)
Quarter: 2012Q3

REPORT INFORMATION
  Report Type: 
  Country: None (occurrence: None)
  Receive Date: 20120810
  Receipt Date: 20120807
  Transmission Date: 20120928
  Serious: Yes (Other)
  Sender: FDA-Public Use
  Company Number: US-ROCHE-1099140

PATIENT
  Age: 53 Year
  Sex: Male
  Weight: 80.358 kg

DRUGS (1)
  1. XELODA [Suspect]
     Indication: RECTAL CANCER
     Route: 048
     Dates: start: 20120620, end: 20120730

REACTIONS (8)
  - RECTAL CANCER METASTATIC [None]
  - FATIGUE [None]
  - ASTHENIA [None]
  - ABDOMINAL DISCOMFORT [None]
  - DECREASED APPETITE [None]
  - FREQUENT BOWEL MOVEMENTS [None]
  - WEIGHT DECREASED [None]
  - CONSTIPATION [None]
